FAERS Safety Report 20074667 (Version 1)
Quarter: 2021Q4

REPORT INFORMATION
  Report Type: Report from Study
  Country: FR (occurrence: FR)
  Receive Date: 20211116
  Receipt Date: 20211116
  Transmission Date: 20220303
  Serious: Yes (Hospitalization)
  Sender: FDA-Public Use
  Company Number: FR-JNJFOC-20170811543

PATIENT
  Age: 50 Year
  Sex: Female
  Weight: 92 kg

DRUGS (8)
  1. SOTALOL [Suspect]
     Active Substance: SOTALOL
     Indication: Product used for unknown indication
     Dosage: UNK
     Route: 065
  2. PREDNISONE [Suspect]
     Active Substance: PREDNISONE
     Indication: Spondylitis
     Dosage: 120 MILLIGRAM, QD
     Route: 048
     Dates: start: 201702
  3. STELARA [Suspect]
     Active Substance: USTEKINUMAB
     Indication: Ankylosing spondylitis
     Dosage: 45 MILLIGRAM
     Route: 058
     Dates: start: 20170201, end: 20180516
  4. ROWASA [Concomitant]
     Active Substance: MESALAMINE
     Dosage: UNK
     Route: 065
  5. NOMEGESTROL ACETATE [Concomitant]
     Active Substance: NOMEGESTROL ACETATE
     Dosage: 3.75 MILLIGRAM, QD
     Route: 065
  6. LEVOCETIRIZINE DIHYDROCHLORIDE [Concomitant]
     Active Substance: LEVOCETIRIZINE DIHYDROCHLORIDE
     Dosage: 5 MILLIGRAM
     Route: 065
  7. MESALAMINE [Concomitant]
     Active Substance: MESALAMINE
     Indication: Colitis ulcerative
     Dosage: 800 MILLIGRAM
     Route: 048
     Dates: start: 20100915
  8. LEVOTHYROXINE [Concomitant]
     Active Substance: LEVOTHYROXINE
     Dosage: 50 MICROGRAM, QD
     Route: 065

REACTIONS (6)
  - Ankylosing spondylitis [Recovered/Resolved]
  - Pneumonia pneumococcal [Recovered/Resolved with Sequelae]
  - Off label use [Unknown]
  - Product use in unapproved indication [Unknown]
  - Pneumococcal sepsis [Recovered/Resolved with Sequelae]
  - Intracranial aneurysm [Recovered/Resolved]

NARRATIVE: CASE EVENT DATE: 20170712
